FAERS Safety Report 8084300-2 (Version None)
Quarter: 2012Q1

REPORT INFORMATION
  Report Type: 
  Country: None (occurrence: None)
  Receive Date: 20120128
  Receipt Date: 20110304
  Transmission Date: 20120608
  Serious: Yes (Hospitalization)
  Sender: FDA-Public Use
  Company Number: US-ABBOTT-11P-163-0709823-00

PATIENT
  Sex: Female
  Weight: 90.8 kg

DRUGS (9)
  1. LACTULOSE [Concomitant]
     Indication: DIVERTICULUM
     Route: 048
  2. PREVACID [Concomitant]
     Indication: GASTROOESOPHAGEAL REFLUX DISEASE
     Route: 048
     Dates: start: 20100101
  3. HUMIRA [Suspect]
     Indication: RHEUMATOID ARTHRITIS
     Route: 058
     Dates: start: 20101105
  4. METHOTREXATE [Concomitant]
     Indication: VITAMIN SUPPLEMENTATION
     Route: 048
  5. ASPIRIN [Concomitant]
     Indication: HEADACHE
     Route: 048
  6. CALCIUM WITH VITAMIN D [Concomitant]
     Indication: MINERAL SUPPLEMENTATION
     Dosage: 600/?
     Route: 048
  7. LEVOTHYROXINE SODIUM [Concomitant]
     Indication: HYPOTHYROIDISM
     Route: 048
  8. FOLIC ACID [Concomitant]
     Indication: VITAMIN SUPPLEMENTATION
     Dosage: QD EXCEPT DAY OF MTX
     Route: 048
  9. ERRIN [Concomitant]
     Indication: ORAL CONTRACEPTION
     Dosage: FOR PARTIAL HYSTERECTOMY
     Route: 048

REACTIONS (5)
  - CHEST PAIN [None]
  - NASOPHARYNGITIS [None]
  - OROPHARYNGEAL PAIN [None]
  - PALPITATIONS [None]
  - HEADACHE [None]
